FAERS Safety Report 24562880 (Version 1)
Quarter: 2024Q4

REPORT INFORMATION
  Report Type: Spontaneous
  Country: IL (occurrence: IL)
  Receive Date: 20241030
  Receipt Date: 20241030
  Transmission Date: 20250114
  Serious: Yes (Death, Hospitalization, Other)
  Sender: Steriscience PTE
  Company Number: IL-STERISCIENCE B.V.-2024-ST-001731

PATIENT
  Age: 10 Year
  Sex: Female

DRUGS (12)
  1. PIPERACILLIN SODIUM\TAZOBACTAM SODIUM [Suspect]
     Active Substance: PIPERACILLIN SODIUM\TAZOBACTAM SODIUM
     Indication: Klebsiella infection
     Dosage: UNK
     Route: 065
  2. PIPERACILLIN SODIUM\TAZOBACTAM SODIUM [Suspect]
     Active Substance: PIPERACILLIN SODIUM\TAZOBACTAM SODIUM
     Indication: Pseudomonas infection
  3. MEROPENEM [Suspect]
     Active Substance: MEROPENEM
     Indication: Pseudomonas infection
     Dosage: UNK
     Route: 065
  4. MEROPENEM [Suspect]
     Active Substance: MEROPENEM
     Indication: Klebsiella infection
  5. CEFTAZIDIME [Suspect]
     Active Substance: CEFTAZIDIME
     Indication: Pseudomonas infection
     Dosage: UNK
     Route: 065
  6. CEFTAZIDIME [Suspect]
     Active Substance: CEFTAZIDIME
     Indication: Klebsiella bacteraemia
  7. CIPROFLOXACIN [Suspect]
     Active Substance: CIPROFLOXACIN
     Indication: Pseudomonas infection
     Dosage: UNK
     Route: 065
  8. CIPROFLOXACIN [Suspect]
     Active Substance: CIPROFLOXACIN
     Indication: Klebsiella bacteraemia
  9. AVIBACTAM SODIUM\CEFTAZIDIME [Suspect]
     Active Substance: AVIBACTAM SODIUM\CEFTAZIDIME
     Indication: Pseudomonas infection
     Dosage: UNK
     Route: 065
  10. AVIBACTAM SODIUM\CEFTAZIDIME [Suspect]
     Active Substance: AVIBACTAM SODIUM\CEFTAZIDIME
     Indication: Klebsiella bacteraemia
  11. AMIKACIN [Suspect]
     Active Substance: AMIKACIN
     Indication: Pseudomonas infection
     Dosage: UNK
     Route: 065
  12. AMIKACIN [Suspect]
     Active Substance: AMIKACIN
     Indication: Klebsiella bacteraemia

REACTIONS (2)
  - Drug ineffective [Fatal]
  - Condition aggravated [Fatal]
